FAERS Safety Report 23972014 (Version 1)
Quarter: 2024Q2

REPORT INFORMATION
  Report Type: Spontaneous
  Country: US (occurrence: US)
  Receive Date: 20240613
  Receipt Date: 20240613
  Transmission Date: 20240716
  Serious: No
  Sender: FDA-Public Use
  Company Number: US-HALEON-2181384

PATIENT

DRUGS (1)
  1. SENSODYNE SENSITIVITY GUM AND ENAMEL MINT [Suspect]
     Active Substance: STANNOUS FLUORIDE
     Indication: Product used for unknown indication

REACTIONS (6)
  - Dry mouth [Recovering/Resolving]
  - Oral pain [Recovering/Resolving]
  - Oral disorder [Recovering/Resolving]
  - Oral mucosal erythema [Recovering/Resolving]
  - Oral mucosal exfoliation [Recovering/Resolving]
  - Oral discomfort [Recovering/Resolving]
